FAERS Safety Report 7406628-9 (Version None)
Quarter: 2011Q2

REPORT INFORMATION
  Report Type: 
  Country: None (occurrence: None)
  Receive Date: 20110406
  Receipt Date: 20110406
  Transmission Date: 20111010
  Serious: Yes (Other)
  Sender: FDA-Public Use
  Company Number: None

PATIENT
  Sex: Female
  Weight: 115.9 kg

DRUGS (4)
  1. GABAPENTIN [Concomitant]
  2. DIOVAN HCT [Concomitant]
  3. LISINOPRIL [Concomitant]
  4. GILENYA [Suspect]
     Indication: MULTIPLE SCLEROSIS
     Dosage: 0.5MG Q DAILY PO
     Route: 048
     Dates: start: 20110304, end: 20110330

REACTIONS (3)
  - SENSATION OF FOREIGN BODY [None]
  - TREMOR [None]
  - AGITATION [None]
